FAERS Safety Report 7917699-5 (Version None)
Quarter: 2011Q4

REPORT INFORMATION
  Report Type: 
  Country: None (occurrence: None)
  Receive Date: 20111116
  Receipt Date: 20111110
  Transmission Date: 20120403
  Serious: Yes (Hospitalization)
  Sender: FDA-Public Use
  Company Number: US-BRISTOL-MYERS SQUIBB COMPANY-16170979

PATIENT
  Age: 57 Year
  Sex: Female
  Weight: 142 kg

DRUGS (7)
  1. LISINOPRIL [Suspect]
  2. GABAPENTIN [Suspect]
  3. SIMVASTATIN [Suspect]
  4. OMEPRAZOLE [Suspect]
  5. KOMBIGLYZE XR [Suspect]
     Indication: TYPE 2 DIABETES MELLITUS
     Dosage: 1DF:5/1000MG
     Route: 048
     Dates: start: 20110822, end: 20111010
  6. METFORMIN HCL [Suspect]
     Indication: DIABETES MELLITUS
  7. NAPROSYN [Suspect]

REACTIONS (2)
  - PANCREATITIS [None]
  - ABDOMINAL PAIN [None]
